FAERS Safety Report 8003028-8 (Version None)
Quarter: 2011Q4

REPORT INFORMATION
  Report Type: 
  Country: None (occurrence: None)
  Receive Date: 20111222
  Receipt Date: 20110923
  Transmission Date: 20120403
  Serious: No
  Sender: FDA-Public Use
  Company Number: US-GLAXOSMITHKLINE-A0945811A

PATIENT
  Age: 61 Year
  Sex: Male

DRUGS (3)
  1. AVODART [Suspect]
     Indication: BENIGN PROSTATIC HYPERPLASIA
     Dosage: 1TAB PER DAY
     Route: 048
     Dates: start: 20110101, end: 20110713
  2. BENADRYL [Concomitant]
  3. FLOMAX [Concomitant]

REACTIONS (3)
  - NIPPLE SWELLING [None]
  - PARAESTHESIA [None]
  - GYNAECOMASTIA [None]
